FAERS Safety Report 9549605 (Version 2)
Quarter: 2013Q4

REPORT INFORMATION
  Report Type: Spontaneous
  Country: US (occurrence: US)
  Receive Date: 20130924
  Receipt Date: 20131009
  Transmission Date: 20140711
  Serious: Yes (Other)
  Sender: FDA-Public Use
  Company Number: US-PFIZER INC-2013270653

PATIENT
  Age: 68 Year
  Sex: Female
  Weight: 76.19 kg

DRUGS (3)
  1. CELEBREX [Suspect]
     Indication: OSTEOARTHRITIS
     Dosage: 200 MG, 1X/DAY
     Route: 048
     Dates: start: 2008, end: 201308
  2. BUPROPION [Concomitant]
     Indication: DEPRESSION
     Dosage: 150 MG
  3. OXYBUTYNIN [Concomitant]
     Indication: BLADDER DISORDER
     Dosage: 5 MG

REACTIONS (2)
  - Hypertension [Not Recovered/Not Resolved]
  - Blood cholesterol increased [Not Recovered/Not Resolved]
